FAERS Safety Report 9435683 (Version 1)
Quarter: 2013Q3

REPORT INFORMATION
  Report Type: Spontaneous
  Country: US (occurrence: US)
  Receive Date: 20130730
  Receipt Date: 20130730
  Transmission Date: 20140515
  Serious: Yes (Other)
  Sender: FDA-Public Use
  Company Number: 2013SA074822

PATIENT
  Age: 4 Year
  Sex: Male

DRUGS (1)
  1. ICY HOT [Suspect]
     Route: 061

REACTIONS (1)
  - Skin burning sensation [None]
